FAERS Safety Report 15051884 (Version 1)
Quarter: 2018Q2

REPORT INFORMATION
  Report Type: Spontaneous
  Country: US (occurrence: US)
  Receive Date: 20180622
  Receipt Date: 20180622
  Transmission Date: 20180711
  Serious: No
  Sender: FDA-Public Use
  Company Number: US-AMGEN-USASP2015097925

PATIENT
  Age: 81 Year
  Sex: Female

DRUGS (1)
  1. XGEVA [Suspect]
     Active Substance: DENOSUMAB
     Indication: PELVIC NEOPLASM
     Dosage: UNK
     Route: 065

REACTIONS (5)
  - Chills [Unknown]
  - Headache [Unknown]
  - Feeling abnormal [Unknown]
  - Fatigue [Unknown]
  - Tooth disorder [Unknown]

NARRATIVE: CASE EVENT DATE: 201509
